FAERS Safety Report 19660575 (Version 1)
Quarter: 2021Q3

REPORT INFORMATION
  Report Type: Spontaneous
  Country: US (occurrence: US)
  Receive Date: 20210805
  Receipt Date: 20210805
  Transmission Date: 20211014
  Serious: No
  Sender: FDA-Public Use
  Company Number: None

PATIENT
  Sex: Female
  Weight: 71.19 kg

DRUGS (8)
  1. IBRANCE [Suspect]
     Active Substance: PALBOCICLIB
     Indication: BREAST CANCER FEMALE
     Route: 048
  2. REMERON [Concomitant]
     Active Substance: MIRTAZAPINE
  3. ATENOLOL. [Concomitant]
     Active Substance: ATENOLOL
  4. BONIVA [Concomitant]
     Active Substance: IBANDRONATE SODIUM
  5. CALCIUM CARBONATE?VITAMIN D3 [Concomitant]
  6. MULTIPLE VIT/MINERALS/NO IRON [Concomitant]
  7. ASPIRIN EC [Concomitant]
     Active Substance: ASPIRIN
  8. PROPAFENONE. [Concomitant]
     Active Substance: PROPAFENONE

REACTIONS (1)
  - Malaise [None]
